FAERS Safety Report 20839504 (Version 4)
Quarter: 2022Q4

REPORT INFORMATION
  Report Type: Report from Study
  Country: CA (occurrence: CA)
  Receive Date: 20220517
  Receipt Date: 20221020
  Transmission Date: 20230112
  Serious: Yes (Hospitalization)
  Sender: FDA-Public Use
  Company Number: CA-OTSUKA-2022_027360

PATIENT
  Sex: Male

DRUGS (1)
  1. CEDAZURIDINE\DECITABINE [Suspect]
     Active Substance: CEDAZURIDINE\DECITABINE
     Indication: Myelodysplastic syndrome
     Dosage: 1 DF (35 MG DECITABINE AND 100 MG CEDAZURIDINE), QD (FOR 3 DOSES)
     Route: 065
     Dates: start: 20220420

REACTIONS (6)
  - Chest pain [Unknown]
  - Nephrolithiasis [Unknown]
  - Oxygen saturation decreased [Unknown]
  - Haemorrhage [Unknown]
  - Fatigue [Unknown]
  - Therapy cessation [Unknown]
